FAERS Safety Report 10039766 (Version 1)
Quarter: 2014Q1

REPORT INFORMATION
  Report Type: Spontaneous
  Country: US (occurrence: US)
  Receive Date: 20140326
  Receipt Date: 20140326
  Transmission Date: 20141002
  Serious: Yes (Other)
  Sender: FDA-Public Use
  Company Number: US-PFIZER INC-2014084501

PATIENT
  Sex: Female

DRUGS (2)
  1. NORVASC [Suspect]
     Dosage: UNK
  2. ATENOLOL [Interacting]
     Dosage: UNK

REACTIONS (6)
  - Cardiac failure congestive [Unknown]
  - Syncope [Unknown]
  - Dyspnoea [Unknown]
  - Pallor [Unknown]
  - Asthenia [Unknown]
  - Drug interaction [Unknown]
